FAERS Safety Report 17957276 (Version 1)
Quarter: 2020Q2

REPORT INFORMATION
  Report Type: Spontaneous
  Country: US (occurrence: US)
  Receive Date: 20200629
  Receipt Date: 20200629
  Transmission Date: 20200714
  Serious: Yes (Hospitalization, Other)
  Sender: FDA-Public Use
  Company Number: US-SUNOVION-2020SUN001846

PATIENT
  Age: 90 Year
  Sex: Female

DRUGS (1)
  1. APTIOM [Suspect]
     Active Substance: ESLICARBAZEPINE ACETATE
     Dosage: 400 MG
     Route: 048

REACTIONS (9)
  - Gait inability [Unknown]
  - Dysstasia [Unknown]
  - Fall [Unknown]
  - Confusional state [Unknown]
  - Seizure [Recovered/Resolved]
  - Suicidal ideation [Unknown]
  - Mobility decreased [Unknown]
  - Depressed mood [Unknown]
  - Incoherent [Unknown]
